FAERS Safety Report 6259431-X (Version None)
Quarter: 2009Q3

REPORT INFORMATION
  Report Type: 
  Country: None (occurrence: None)
  Receive Date: 20090708
  Receipt Date: 20070406
  Transmission Date: 20100115
  Serious: Yes (Hospitalization, Disabling)
  Sender: FDA-Public Use
  Company Number: US-ASTRAZENECA-2006UW27830

PATIENT
  Age: 11910 Day
  Sex: Female
  Weight: 149.7 kg

DRUGS (12)
  1. SEROQUEL [Suspect]
     Indication: SLEEP DISORDER
     Route: 048
     Dates: start: 20030101, end: 20060301
  2. SEROQUEL [Suspect]
     Dosage: 50 MG - 200 MG
     Route: 048
     Dates: start: 20030123
  3. CYMBALTA [Concomitant]
     Route: 048
  4. XANAX [Concomitant]
     Route: 048
  5. GLUCOPHAGE [Concomitant]
  6. LOPRESSOR [Concomitant]
  7. DEPO-PROVERA [Concomitant]
  8. ENBREL [Concomitant]
  9. LEVAQUIN [Concomitant]
  10. FLONASE [Concomitant]
  11. ALLEGRA [Concomitant]
  12. AMBIEN [Concomitant]

REACTIONS (5)
  - ARRHYTHMIA [None]
  - DIABETES MELLITUS [None]
  - HYPERGLYCAEMIA [None]
  - INFECTION [None]
  - SUPRAVENTRICULAR TACHYCARDIA [None]
